FAERS Safety Report 18899246 (Version 1)
Quarter: 2021Q1

REPORT INFORMATION
  Report Type: Spontaneous
  Country: CA (occurrence: CA)
  Receive Date: 20210216
  Receipt Date: 20210216
  Transmission Date: 20210420
  Serious: Yes (Hospitalization, Other)
  Sender: FDA-Public Use
  Company Number: CA-JNJFOC-20210224477

PATIENT
  Age: 61 Year
  Sex: Male

DRUGS (21)
  1. APIXABAN [Concomitant]
     Active Substance: APIXABAN
     Route: 048
  2. METOPROLOL. [Concomitant]
     Active Substance: METOPROLOL
     Route: 048
  3. METOPROLOL. [Concomitant]
     Active Substance: METOPROLOL
     Route: 065
  4. SULFASALAZINE. [Concomitant]
     Active Substance: SULFASALAZINE
     Route: 048
  5. CALCIUM CARBONATE. [Suspect]
     Active Substance: CALCIUM CARBONATE
     Indication: PRODUCT USED FOR UNKNOWN INDICATION
     Route: 065
  6. APIXABAN [Concomitant]
     Active Substance: APIXABAN
     Route: 065
  7. PREDNISONE. [Concomitant]
     Active Substance: PREDNISONE
     Indication: PSORIATIC ARTHROPATHY
     Route: 048
  8. RAMIPRIL. [Concomitant]
     Active Substance: RAMIPRIL
     Route: 065
  9. STELARA [Suspect]
     Active Substance: USTEKINUMAB
     Indication: PRODUCT USED FOR UNKNOWN INDICATION
     Route: 058
  10. ENBREL [Suspect]
     Active Substance: ETANERCEPT
     Indication: PSORIATIC ARTHROPATHY
     Route: 065
  11. SPIRONOLACTONE. [Concomitant]
     Active Substance: SPIRONOLACTONE
     Route: 048
  12. HYDROXYCHLOROQUINE SULFATE. [Concomitant]
     Active Substance: HYDROXYCHLOROQUINE SULFATE
     Indication: PSORIATIC ARTHROPATHY
     Route: 065
  13. METHOTREXATE. [Concomitant]
     Active Substance: METHOTREXATE
     Indication: PSORIATIC ARTHROPATHY
     Route: 058
  14. AMIODARONE [Concomitant]
     Active Substance: AMIODARONE
     Route: 048
  15. FOLIC ACID. [Concomitant]
     Active Substance: FOLIC ACID
     Route: 065
  16. ERGOCALCIFEROL. [Suspect]
     Active Substance: ERGOCALCIFEROL
     Indication: PRODUCT USED FOR UNKNOWN INDICATION
     Route: 065
  17. OMEPRAZOLE. [Suspect]
     Active Substance: OMEPRAZOLE
     Indication: PRODUCT USED FOR UNKNOWN INDICATION
     Route: 048
  18. TAFAMIDIS [Concomitant]
     Active Substance: TAFAMIDIS MEGLUMINE
     Route: 065
  19. LASIX [Concomitant]
     Active Substance: FUROSEMIDE
     Route: 048
  20. RAMIPRIL. [Concomitant]
     Active Substance: RAMIPRIL
     Route: 048
  21. SULFASALAZINE. [Concomitant]
     Active Substance: SULFASALAZINE
     Route: 065

REACTIONS (2)
  - Cardiac failure congestive [Recovered/Resolved]
  - Amyloidosis [Recovered/Resolved]
